FAERS Safety Report 4280053-4 (Version None)
Quarter: 2004Q1

REPORT INFORMATION
  Report Type: 
  Country: None (occurrence: None)
  Receive Date: 20040126
  Receipt Date: 20040119
  Transmission Date: 20041129
  Serious: Yes (Death, Hospitalization)
  Sender: FDA-Public Use
  Company Number: PERI00204000176

PATIENT
  Age: 78 Year
  Sex: Female
  Weight: 88 kg

DRUGS (4)
  1. COVERSYL (PERINDOPRIL) [Suspect]
     Indication: HYPERTENSION
     Dosage: 4 MG QD PO
     Route: 048
     Dates: start: 20010101, end: 20040103
  2. LASIX [Suspect]
     Indication: ILL-DEFINED DISORDER
     Dosage: DAILY PO
     Route: 048
     Dates: start: 20010101, end: 20040103
  3. CELECOXIB (CELECOXIB) [Suspect]
     Indication: ILL-DEFINED DISORDER
     Dosage: DAILY PO
     Route: 048
     Dates: start: 20020101, end: 20040103
  4. HYPERIUM (RILMENIDINE) [Concomitant]

REACTIONS (3)
  - DRUG INTERACTION [None]
  - MALAISE [None]
  - RENAL FAILURE ACUTE [None]
